FAERS Safety Report 7597235-6 (Version None)
Quarter: 2011Q3

REPORT INFORMATION
  Report Type: 
  Country: None (occurrence: None)
  Receive Date: 20110708
  Receipt Date: 20101119
  Transmission Date: 20111222
  Serious: No
  Sender: FDA-Public Use
  Company Number: US-GLAXOSMITHKLINE-A0894250A

PATIENT
  Age: 64 Year
  Sex: Female

DRUGS (2)
  1. FLOVENT [Suspect]
     Indication: EMPHYSEMA
     Dosage: 2PUFF PER DAY
     Route: 055
     Dates: start: 20101004, end: 20101008
  2. NO CONCURRENT MEDICATION [Concomitant]

REACTIONS (1)
  - COUGH [None]
